FAERS Safety Report 9700367 (Version 1)
Quarter: 2013Q4

REPORT INFORMATION
  Report Type: Spontaneous
  Country: TH (occurrence: None)
  Receive Date: 20131119
  Receipt Date: 20131119
  Transmission Date: 20140711
  Serious: Yes (Other)
  Sender: FDA-Public Use
  Company Number: 2013TH00765

PATIENT
  Age: 48 Month
  Sex: Male

DRUGS (4)
  1. CARBOPLATIN [Suspect]
     Indication: RENAL NEOPLASM
  2. IFOSFAMIDE (IFOSFAMIDE) [Suspect]
     Indication: RENAL CANCER
  3. ETOPOSIDE (ETOPOSIDE) [Suspect]
     Indication: RENAL CANCER
  4. RADIATION [Suspect]
     Indication: RENAL CANCER

REACTIONS (1)
  - Renal failure chronic [None]
